FAERS Safety Report 9494250 (Version 1)
Quarter: 2013Q3

REPORT INFORMATION
  Report Type: Spontaneous
  Country: US (occurrence: None)
  Receive Date: 20130830
  Receipt Date: 20130830
  Transmission Date: 20140515
  Serious: Yes (Death, Other)
  Sender: FDA-Public Use
  Company Number: None

PATIENT
  Sex: Male

DRUGS (4)
  1. BACLOFEN [Suspect]
     Indication: PAIN
     Dosage: 75.01MCG/DAY
  2. DILAUDID [Suspect]
     Dosage: 1.0001MG/DAY
  3. BUPIVICAINE [Suspect]
     Dosage: 10.001 MG/DAY
  4. CLONIDINE [Suspect]
     Dosage: 75.01MCG/DAY

REACTIONS (1)
  - Death [None]
